FAERS Safety Report 5018367-2 (Version None)
Quarter: 2006Q2

REPORT INFORMATION
  Report Type: 
  Country: None (occurrence: None)
  Receive Date: 20060530
  Receipt Date: 20060516
  Transmission Date: 20061013
  Serious: Yes (Other)
  Sender: FDA-Public Use
  Company Number: 2006064022

PATIENT
  Age: 70 Year
  Sex: Male

DRUGS (2)
  1. MYCOBUTIN [Suspect]
     Indication: ILL-DEFINED DISORDER
     Dosage: 300 MG (300 MG, 1 IN 1 D), ORAL
     Route: 048
     Dates: start: 20060510
  2. CLARITHROMYCIN (CLARITHROMCIN) [Concomitant]

REACTIONS (2)
  - DYSPNOEA [None]
  - WEIGHT DECREASED [None]
